FAERS Safety Report 7996910-9 (Version None)
Quarter: 2011Q4

REPORT INFORMATION
  Report Type: 
  Country: None (occurrence: None)
  Receive Date: 20111216
  Receipt Date: 20111210
  Transmission Date: 20120403
  Serious: Yes (Death, Hospitalization)
  Sender: FDA-Public Use
  Company Number: 127485

PATIENT
  Age: 76 Year
  Sex: Female

DRUGS (1)
  1. AZATHIOPRINE SODIUM [Suspect]
     Indication: MYELODYSPLASTIC SYNDROME
     Dosage: 50MG/DAY

REACTIONS (10)
  - PROGRESSIVE MULTIFOCAL LEUKOENCEPHALOPATHY [None]
  - BACTERIAL INFECTION [None]
  - FALL [None]
  - PNEUMONIA [None]
  - FUNGAL INFECTION [None]
  - CEREBRAL INFARCTION [None]
  - MUTISM [None]
  - HEMIPLEGIA [None]
  - FEMORAL NECK FRACTURE [None]
  - COMMUNICATION DISORDER [None]
